FAERS Safety Report 5620066-0 (Version None)
Quarter: 2008Q1

REPORT INFORMATION
  Report Type: 
  Country: None (occurrence: None)
  Receive Date: 20080208
  Receipt Date: 20080130
  Transmission Date: 20080703
  Serious: Yes (Other)
  Sender: FDA-Public Use
  Company Number: GR-ABBOTT-07P-066-0428524-00

PATIENT
  Sex: Female
  Weight: 90.8 kg

DRUGS (15)
  1. ZEMPLAR [Suspect]
     Indication: HYPERPARATHYROIDISM SECONDARY
     Route: 042
     Dates: start: 20070212, end: 20071001
  2. ZEMPLAR [Suspect]
     Route: 042
     Dates: start: 20071101
  3. EPOETIN BETA [Concomitant]
     Indication: ANAEMIA
     Route: 042
  4. FERROVIN [Concomitant]
     Indication: ANAEMIA
     Route: 042
  5. SUPERAMINE [Concomitant]
     Indication: CARNITINE DEFICIENCY
     Route: 042
  6. NEUROBION [Concomitant]
     Indication: HYPOVITAMINOSIS
     Route: 042
  7. ACENOCOUMAROL [Concomitant]
     Indication: ATRIAL FIBRILLATION
     Route: 048
  8. CARVEDILOL [Concomitant]
     Indication: ATRIAL FIBRILLATION
     Route: 048
  9. CARVEDILOL [Concomitant]
     Indication: CARDIAC FAILURE
  10. RANITIDINE HYDROCHLORIDE [Concomitant]
     Indication: GASTROOESOPHAGEAL REFLUX PROPHYLAXIS
     Route: 048
  11. EPLERENONE [Concomitant]
     Indication: CARDIAC FAILURE
     Route: 048
  12. FUROSEMIDE [Concomitant]
     Indication: DIURETIC THERAPY
     Route: 048
  13. DIGOXIN [Concomitant]
     Indication: ATRIAL FIBRILLATION
     Route: 048
  14. DIGOXIN [Concomitant]
     Indication: CARDIAC FAILURE
  15. NIMPARA [Concomitant]
     Indication: HYPERCALCAEMIA
     Dates: start: 20070501

REACTIONS (1)
  - HYPERCALCAEMIA [None]
